FAERS Safety Report 4514035-1 (Version None)
Quarter: 2004Q4

REPORT INFORMATION
  Report Type: 
  Country: None (occurrence: None)
  Receive Date: 20041124
  Receipt Date: 20041108
  Transmission Date: 20050328
  Serious: Yes (Hospitalization, Other)
  Sender: FDA-Public Use
  Company Number: USA040876391

PATIENT
  Age: 79 Year
  Sex: Male
  Weight: 94 kg

DRUGS (7)
  1. FORTEO [Suspect]
     Indication: OSTEOPOROSIS
     Dosage: 20 UG DAY
     Dates: start: 20021101
  2. FOSMAX (ALENDRONATE SODIUM) [Concomitant]
  3. ZOCOR [Concomitant]
  4. LISINOPRIL (LISONOPRIL) [Concomitant]
  5. ASPIRIN [Concomitant]
  6. CALCIUM WITH VITAMIN D [Concomitant]
  7. ACIPHEX [Concomitant]

REACTIONS (5)
  - FOREIGN BODY TRAUMA [None]
  - LOSS OF CONSCIOUSNESS [None]
  - OESOPHAGEAL SPASM [None]
  - OESOPHAGEAL ULCER [None]
  - OESOPHAGITIS [None]
